FAERS Safety Report 7220378-3 (Version None)
Quarter: 2011Q1

REPORT INFORMATION
  Report Type: 
  Country: None (occurrence: None)
  Receive Date: 20110111
  Receipt Date: 20101227
  Transmission Date: 20110831
  Serious: Yes (Other)
  Sender: FDA-Public Use
  Company Number: JP-AMGEN-JPNCT2011001532

PATIENT

DRUGS (12)
  1. IRINOTECAN HYDROCHLORIDE [Suspect]
     Indication: COLORECTAL CANCER
     Route: 041
     Dates: start: 20101004, end: 20101004
  2. TS 1 [Suspect]
     Indication: COLORECTAL CANCER
     Route: 048
     Dates: start: 20101004, end: 20101018
  3. AZUNOL GARGLE LIQUID [Concomitant]
     Route: 049
  4. MAXIPIME [Concomitant]
     Route: 042
  5. DIOVAN [Concomitant]
     Route: 048
  6. PANITUMUMAB [Suspect]
     Indication: COLORECTAL CANCER
     Dosage: UNK
     Route: 041
     Dates: start: 20101004
  7. TAKEPRON OD TABLETS 15 [Concomitant]
     Route: 048
  8. CORTICOSTEROIDS [Concomitant]
     Indication: PROPHYLAXIS
     Route: 065
  9. GRAN [Concomitant]
     Route: 042
  10. LOPEMIN [Concomitant]
     Route: 048
  11. IBRUPROFEN [Concomitant]
     Route: 048
  12. TSUMURA HANGE-SHASHIN-TO [Concomitant]
     Route: 048

REACTIONS (5)
  - DIARRHOEA [None]
  - STOMATITIS [None]
  - NEUTROPHIL COUNT DECREASED [None]
  - DERMATITIS ACNEIFORM [None]
  - PARONYCHIA [None]
